FAERS Safety Report 16116824 (Version 1)
Quarter: 2019Q1

REPORT INFORMATION
  Report Type: Report from Study
  Country: None (occurrence: BR)
  Receive Date: 20190326
  Receipt Date: 20190326
  Transmission Date: 20190418
  Serious: Yes (Other)
  Sender: FDA-Public Use
  Company Number: BR-ABBVIE-19K-020-2713374-00

PATIENT
  Sex: Male
  Weight: 69 kg

DRUGS (6)
  1. FOLIC ACID. [Concomitant]
     Active Substance: FOLIC ACID
     Indication: AXIAL SPONDYLOARTHRITIS
     Route: 065
  2. VASLIP [Concomitant]
     Indication: BLOOD CHOLESTEROL ABNORMAL
     Route: 065
  3. VASLIP [Concomitant]
     Indication: BLOOD PRESSURE MANAGEMENT
  4. ZYLORIC [Concomitant]
     Active Substance: ALLOPURINOL
     Indication: BLOOD URIC ACID ABNORMAL
     Route: 065
  5. HUMIRA [Suspect]
     Active Substance: ADALIMUMAB
     Indication: AXIAL SPONDYLOARTHRITIS
     Route: 058
     Dates: start: 20180802
  6. METHOTREXATE. [Concomitant]
     Active Substance: METHOTREXATE
     Indication: AXIAL SPONDYLOARTHRITIS
     Dosage: EVERY THURSDAY AND FRIDAY
     Route: 065

REACTIONS (4)
  - Blood uric acid abnormal [Unknown]
  - Blood cholesterol abnormal [Unknown]
  - Blood pressure abnormal [Unknown]
  - Prostate cancer [Not Recovered/Not Resolved]

NARRATIVE: CASE EVENT DATE: 201812
